FAERS Safety Report 24240798 (Version 1)
Quarter: 2024Q3

REPORT INFORMATION
  Report Type: Report from Study
  Country: ES (occurrence: ES)
  Receive Date: 20240823
  Receipt Date: 20240823
  Transmission Date: 20241016
  Serious: Yes (Other)
  Sender: BEIGENE
  Company Number: ES-BEIGENE-BGN-2024-013026

PATIENT

DRUGS (1)
  1. TISLELIZUMAB [Suspect]
     Active Substance: TISLELIZUMAB
     Indication: Hepatocellular carcinoma

REACTIONS (2)
  - Immune-mediated myasthenia gravis [Recovered/Resolved]
  - Immune-mediated adrenal insufficiency [Unknown]
